FAERS Safety Report 7331724-4 (Version None)
Quarter: 2011Q1

REPORT INFORMATION
  Report Type: 
  Country: None (occurrence: None)
  Receive Date: 20110304
  Receipt Date: 20110218
  Transmission Date: 20110831
  Serious: Yes (Hospitalization)
  Sender: FDA-Public Use
  Company Number: PHHY2011AU17211

PATIENT
  Sex: Female

DRUGS (1)
  1. CLOZARIL [Suspect]
     Dosage: 675 MG, UNK
     Dates: start: 20000425

REACTIONS (5)
  - FALL [None]
  - HEADACHE [None]
  - SCHIZOAFFECTIVE DISORDER [None]
  - HALLUCINATION, AUDITORY [None]
  - LOSS OF CONSCIOUSNESS [None]
